FAERS Safety Report 22276080 (Version 1)
Quarter: 2023Q2

REPORT INFORMATION
  Report Type: Spontaneous
  Country: US (occurrence: US)
  Receive Date: 20230502
  Receipt Date: 20230502
  Transmission Date: 20230722
  Serious: No
  Sender: FDA-Public Use
  Company Number: US-AERIE-2022-002926

PATIENT

DRUGS (2)
  1. ROCKLATAN [Suspect]
     Active Substance: LATANOPROST\NETARSUDIL MESYLATE
     Indication: Intraocular pressure increased
     Dosage: 1 GTT, OU, QD
     Route: 047
     Dates: start: 20220915, end: 20220915
  2. LATANOPROST [Concomitant]
     Active Substance: LATANOPROST
     Indication: Ocular hypertension
     Dosage: 1 GTT, OU, QHS
     Route: 047
     Dates: start: 202204

REACTIONS (7)
  - Myopia [Unknown]
  - Corneal thinning [Unknown]
  - Conjunctivitis [Recovered/Resolved]
  - Keratitis [Recovered/Resolved]
  - Eye irritation [Recovered/Resolved]
  - Conjunctival hyperaemia [Recovered/Resolved]
  - Vision blurred [Not Recovered/Not Resolved]

NARRATIVE: CASE EVENT DATE: 20220915
